FAERS Safety Report 9375274 (Version 2)
Quarter: 2013Q3

REPORT INFORMATION
  Report Type: Report from Study
  Country: US (occurrence: US)
  Receive Date: 20130628
  Receipt Date: 20130711
  Transmission Date: 20140515
  Serious: Yes (Hospitalization)
  Sender: FDA-Public Use
  Company Number: US-AMGEN-USACT2013044876

PATIENT
  Age: 79 Year
  Sex: Female
  Weight: 36.74 kg

DRUGS (15)
  1. PANITUMUMAB [Suspect]
     Indication: NON-SMALL CELL LUNG CANCER
     Dosage: 210 MG, UNK
     Route: 042
     Dates: start: 20120712
  2. NEULASTA [Concomitant]
     Indication: PROPHYLAXIS
     Dosage: 6 MG, Q3WK
     Dates: start: 20120803
  3. CARBOPLATIN [Concomitant]
     Indication: NON-SMALL CELL LUNG CANCER
     Dosage: 326 MG, UNK
     Route: 042
     Dates: start: 20120712
  4. ALIMTA [Concomitant]
     Indication: NON-SMALL CELL LUNG CANCER
     Dosage: 650 MG, UNK
     Route: 042
     Dates: start: 20120712
  5. FERROUS SULFATE [Concomitant]
     Indication: ANAEMIA
     Dosage: 325 MG, BID
     Dates: start: 20130326
  6. EXCEDRIN [Concomitant]
     Indication: BACK PAIN
     Dosage: UNK UNK, AS NECESSARY
     Dates: start: 20130109
  7. LORTAB [Concomitant]
     Indication: PAIN
     Dosage: UNK UNK, AS NECESSARY
     Dates: start: 20120802
  8. NYSTATIN [Concomitant]
     Indication: RASH
     Dosage: UNK UNK, TID
     Dates: start: 20120802
  9. LIPITOR [Concomitant]
     Indication: HYPERLIPIDAEMIA
     Dosage: 20 MG, QD
     Dates: start: 20000101
  10. COMPAZINE [Concomitant]
     Indication: NAUSEA
     Dosage: 10 MG, AS NECESSARY
     Dates: start: 20120712
  11. COMPAZINE [Concomitant]
     Indication: VOMITING
  12. PHENERGAN [Concomitant]
     Indication: NAUSEA
     Dosage: 25 MG, AS NECESSARY
     Dates: start: 20120712
  13. PHENERGAN [Concomitant]
     Indication: VOMITING
  14. FOLIC ACID [Concomitant]
     Dosage: 1 MG, UNK
     Route: 048
     Dates: start: 20120702
  15. VITAMIN B12 [Concomitant]
     Dosage: 1000 MUG, UNK
     Route: 030
     Dates: start: 20120702

REACTIONS (1)
  - Anaemia [Recovered/Resolved]
